FAERS Safety Report 23503441 (Version 3)
Quarter: 2024Q1

REPORT INFORMATION
  Report Type: Report from Study
  Country: US (occurrence: US)
  Receive Date: 20240208
  Receipt Date: 20240312
  Transmission Date: 20240410
  Serious: Yes (Hospitalization, Other)
  Sender: FDA-Public Use
  Company Number: US-JNJFOC-20240206700

PATIENT
  Age: 62 Year
  Sex: Female
  Weight: 57.3 kg

DRUGS (4)
  1. EPOPROSTENOL SODIUM [Suspect]
     Active Substance: EPOPROSTENOL SODIUM
     Indication: Pulmonary arterial hypertension
     Route: 042
  2. EPOPROSTENOL SODIUM [Suspect]
     Active Substance: EPOPROSTENOL SODIUM
     Route: 042
  3. ADEMPAS [Concomitant]
     Active Substance: RIOCIGUAT
  4. AMBRISENTAN [Concomitant]
     Active Substance: AMBRISENTAN

REACTIONS (13)
  - Device occlusion [Unknown]
  - Pneumonia [Unknown]
  - Neuropathy peripheral [Unknown]
  - Rheumatoid arthritis [Unknown]
  - Underdose [Unknown]
  - Nausea [Unknown]
  - Headache [Unknown]
  - Arthralgia [Unknown]
  - Fibromyalgia [Unknown]
  - Pain [Unknown]
  - Weight decreased [Unknown]
  - Mycotic allergy [Unknown]
  - Back pain [Unknown]

NARRATIVE: CASE EVENT DATE: 20231214
